FAERS Safety Report 5919868-2 (Version None)
Quarter: 2008Q4

REPORT INFORMATION
  Report Type: 
  Country: None (occurrence: None)
  Receive Date: 20081015
  Receipt Date: 20081003
  Transmission Date: 20090506
  Serious: Yes (Hospitalization)
  Sender: FDA-Public Use
  Company Number: US-PFIZER INC-2008083924

PATIENT
  Sex: Female
  Weight: 68 kg

DRUGS (3)
  1. XANAX [Suspect]
     Indication: PANIC ATTACK
     Dates: start: 19910101
  2. ZYRTEC-D 12 HOUR [Concomitant]
  3. PREMPRO [Concomitant]

REACTIONS (1)
  - PANIC ATTACK [None]
